FAERS Safety Report 6664602-4 (Version None)
Quarter: 2010Q1

REPORT INFORMATION
  Report Type: 
  Country: None (occurrence: None)
  Receive Date: 20100330
  Receipt Date: 20091118
  Transmission Date: 20100710
  Serious: Yes (Hospitalization)
  Sender: FDA-Public Use
  Company Number: 6055053

PATIENT
  Age: 74 Year
  Sex: Female
  Weight: 47 kg

DRUGS (7)
  1. LEVOTHYROXINE SODIUM [Suspect]
     Indication: HYPOTHYROIDISM
     Dosage: 1 DOSAGE FORMS (1 DOSAGE FORMS 1 IN 1 D), ORAL
     Route: 048
     Dates: start: 20090408, end: 20090510
  2. AMLODIPINE BESYLATE [Concomitant]
  3. ATARAX [Concomitant]
  4. ACETAMINOPHEN [Concomitant]
  5. FOSAVANCE (ALENDRONIC ACID, COLECALCIFEROL) [Concomitant]
  6. NEXIUM [Concomitant]
  7. . [Concomitant]

REACTIONS (5)
  - DECREASED APPETITE [None]
  - DIARRHOEA [None]
  - FRACTURED SACRUM [None]
  - HYPERTHYROIDISM [None]
  - NAUSEA [None]
